FAERS Safety Report 5080744-1 (Version None)
Quarter: 2006Q3

REPORT INFORMATION
  Report Type: 
  Country: None (occurrence: None)
  Receive Date: 20060809
  Receipt Date: 20060727
  Transmission Date: 20061208
  Serious: Yes (Other)
  Sender: FDA-Public Use
  Company Number: 2006094721

PATIENT
  Sex: Female

DRUGS (1)
  1. FELDENE [Suspect]
     Indication: HEADACHE
     Dosage: 20 MG (20 MG), ORAL
     Route: 048
     Dates: start: 20060701, end: 20060701

REACTIONS (2)
  - HAEMATOMA [None]
  - OEDEMA [None]
